FAERS Safety Report 25008902 (Version 1)
Quarter: 2025Q1

REPORT INFORMATION
  Report Type: Spontaneous
  Country: GB (occurrence: GB)
  Receive Date: 20250225
  Receipt Date: 20250225
  Transmission Date: 20250409
  Serious: Yes (Hospitalization, Other)
  Sender: AUROBINDO
  Company Number: GB-MLMSERVICE-20250124-PI373520-00214-1

PATIENT
  Age: 72 Year
  Sex: Female

DRUGS (5)
  1. MEROPENEM [Suspect]
     Active Substance: MEROPENEM
     Indication: Neutropenic sepsis
     Dosage: 500 MILLIGRAM, 3 TIMES A DAY
     Route: 042
  2. CIPROFLOXACIN [Suspect]
     Active Substance: CIPROFLOXACIN
     Indication: Neutropenic sepsis
     Route: 065
  3. TEICOPLANIN [Suspect]
     Active Substance: TEICOPLANIN
     Indication: Neutropenic sepsis
     Route: 065
  4. BISOPROLOL [Concomitant]
     Active Substance: BISOPROLOL
     Indication: Atrial fibrillation
     Route: 065
  5. APIXABAN [Concomitant]
     Active Substance: APIXABAN
     Indication: Atrial fibrillation
     Route: 065

REACTIONS (3)
  - Hypokalaemia [Recovered/Resolved]
  - Drug ineffective [Unknown]
  - Blood albumin decreased [Unknown]
